FAERS Safety Report 7474937-3 (Version None)
Quarter: 2011Q2

REPORT INFORMATION
  Report Type: 
  Country: None (occurrence: None)
  Receive Date: 20110512
  Receipt Date: 20091122
  Transmission Date: 20111010
  Serious: Yes (Other)
  Sender: FDA-Public Use
  Company Number: US-BAYER-200940264NA

PATIENT
  Age: 60 Year
  Sex: Female
  Weight: 74.83 kg

DRUGS (26)
  1. NITROGLYCERIN [Concomitant]
     Indication: PRODUCT USED FOR UNKNOWN INDICATION
     Dosage: UNK
     Dates: start: 20030318, end: 20030321
  2. ANECTINE [Concomitant]
     Dosage: UNK
     Dates: start: 20030322, end: 20030322
  3. AMIODARONE HCL [Concomitant]
     Dosage: 1 G, UNK
     Dates: start: 20030322, end: 20030322
  4. ALDACTONE [Concomitant]
     Indication: PRODUCT USED FOR UNKNOWN INDICATION
     Dosage: 25 MG, QD
  5. DOBUTAMINE HYDROCHLORIDE [Concomitant]
     Dosage: UNK
     Dates: start: 20030321, end: 20030325
  6. EPINEPHRINE [Concomitant]
     Indication: PRODUCT USED FOR UNKNOWN INDICATION
     Dosage: UNK
     Dates: start: 20030318, end: 20030319
  7. PRIMACOR [Concomitant]
     Indication: PRODUCT USED FOR UNKNOWN INDICATION
     Dosage: UNK
     Dates: start: 20030322
  8. TRASYLOL [Suspect]
     Indication: MITRAL VALVE REPLACEMENT
     Dosage: 200CC FOLLOWED BY 150CC/HOUR
     Route: 042
     Dates: start: 20030322
  9. TRASYLOL [Suspect]
     Indication: CORONARY ARTERY BYPASS
  10. VERSED [Concomitant]
     Dosage: UNK
     Dates: start: 20030322, end: 20030322
  11. TRASYLOL [Suspect]
     Indication: MITRAL VALVE REPAIR
  12. DOPAMINE HCL [Concomitant]
     Indication: PRODUCT USED FOR UNKNOWN INDICATION
     Dosage: UNK
     Dates: start: 20030321, end: 20030330
  13. AMIODARONE HCL [Concomitant]
     Indication: PRODUCT USED FOR UNKNOWN INDICATION
     Dosage: UNK
     Dates: start: 20030321, end: 20030330
  14. HEPARIN [Concomitant]
     Dosage: 5000 U, UNK
     Dates: start: 20030322, end: 20030322
  15. THROMBIN LOCAL SOLUTION [Concomitant]
     Dosage: 50000 U, UNK
     Dates: start: 20030322, end: 20030322
  16. FENTANYL [Concomitant]
     Dosage: UNK
     Dates: start: 20030322, end: 20030322
  17. ACCUPRIL [Concomitant]
     Indication: PRODUCT USED FOR UNKNOWN INDICATION
     Dosage: 20 MG, QD
  18. CARDIZEM [Concomitant]
     Indication: PRODUCT USED FOR UNKNOWN INDICATION
     Dosage: UNK
     Dates: start: 20030323
  19. PROTAMINE SULFATE [Concomitant]
     Dosage: 0.1MG/KG/HR
     Dates: start: 20030322, end: 20030322
  20. FUROSEMIDE [Concomitant]
     Indication: PRODUCT USED FOR UNKNOWN INDICATION
     Dosage: 40 MG, QD
  21. POTASSIUM [POTASSIUM] [Concomitant]
     Indication: PRODUCT USED FOR UNKNOWN INDICATION
     Dosage: 20 MEQ, QD
  22. DOBUTAMINE HYDROCHLORIDE [Concomitant]
     Indication: PRODUCT USED FOR UNKNOWN INDICATION
     Dosage: UNK
     Dates: start: 20030318
  23. LEVOPHED [Concomitant]
     Indication: PRODUCT USED FOR UNKNOWN INDICATION
     Dosage: 16.7 CC/HOUR UNK
     Dates: start: 20030322, end: 20030324
  24. VANCOMYCIN [Concomitant]
     Indication: PRODUCT USED FOR UNKNOWN INDICATION
  25. LASIX [Concomitant]
     Dosage: 40 MG, UNK
  26. PAVULON [Concomitant]
     Dosage: UNK
     Dates: start: 20030322, end: 20030322

REACTIONS (12)
  - RENAL FAILURE [None]
  - RENAL IMPAIRMENT [None]
  - STRESS [None]
  - FEAR [None]
  - PSYCHIATRIC SYMPTOM [None]
  - ANXIETY [None]
  - UNEVALUABLE EVENT [None]
  - INJURY [None]
  - RENAL INJURY [None]
  - PAIN [None]
  - ANHEDONIA [None]
  - EMOTIONAL DISTRESS [None]
